FAERS Safety Report 4749442-5 (Version None)
Quarter: 2005Q3

REPORT INFORMATION
  Report Type: 
  Country: None (occurrence: None)
  Receive Date: 20050822
  Receipt Date: 20050810
  Transmission Date: 20060218
  Serious: Yes (Hospitalization)
  Sender: FDA-Public Use
  Company Number: US-JNJFOC-20050802791

PATIENT
  Sex: Female
  Weight: 96.62 kg

DRUGS (11)
  1. REMICADE [Suspect]
     Indication: RHEUMATOID ARTHRITIS
  2. PREDNISONE [Concomitant]
  3. PLAQUENIL [Concomitant]
  4. METHOTREXATE [Concomitant]
  5. FOSAMAX [Concomitant]
  6. NEXIUM [Concomitant]
  7. ZOLOFT [Concomitant]
  8. AMBIEN [Concomitant]
  9. DARVOCET [Concomitant]
  10. DARVOCET [Concomitant]
  11. CALCIUM GLUCONATE [Concomitant]

REACTIONS (2)
  - LIVER FUNCTION TEST ABNORMAL [None]
  - PNEUMONIA LEGIONELLA [None]
